FAERS Safety Report 6142629-9 (Version None)
Quarter: 2009Q2

REPORT INFORMATION
  Report Type: 
  Country: None (occurrence: None)
  Receive Date: 20090402
  Receipt Date: 20090402
  Transmission Date: 20091009
  Serious: Yes (Hospitalization)
  Sender: FDA-Public Use
  Company Number: None

PATIENT
  Age: 58 Year
  Sex: Male

DRUGS (3)
  1. NAFCILLIN SODIUM [Suspect]
     Indication: CELLULITIS
     Dosage: 2 GM IV
     Route: 042
     Dates: start: 20081129, end: 20081201
  2. NAFCILLIN SODIUM [Suspect]
     Indication: DIABETIC FOOT
     Dosage: 2 GM IV
     Route: 042
     Dates: start: 20081129, end: 20081201
  3. LISINOPRIL [Suspect]
     Indication: HYPERTENSION
     Dosage: 5 MG EVERY DAY PO
     Route: 048
     Dates: start: 20080625, end: 20081129

REACTIONS (3)
  - RENAL FAILURE ACUTE [None]
  - RENAL INJURY [None]
  - TUBULOINTERSTITIAL NEPHRITIS [None]
